FAERS Safety Report 20817998 (Version 1)
Quarter: 2022Q2

REPORT INFORMATION
  Report Type: Spontaneous
  Country: GB (occurrence: GB)
  Receive Date: 20220512
  Receipt Date: 20220512
  Transmission Date: 20220721
  Serious: Yes (Hospitalization, Disabling)
  Sender: FDA-Public Use
  Company Number: GB-EXELIXIS-CABO-22049969

PATIENT
  Age: 82 Year
  Sex: Male

DRUGS (2)
  1. CABOMETYX [Suspect]
     Active Substance: CABOZANTINIB S-MALATE
     Indication: Pelvic neoplasm
     Dosage: 40 MG
  2. CABOMETYX [Suspect]
     Active Substance: CABOZANTINIB S-MALATE
     Indication: Bone cancer metastatic
     Dosage: 20 MG, QD
     Dates: start: 20220407, end: 20220429

REACTIONS (7)
  - Immobile [Unknown]
  - Fall [Unknown]
  - Hypersomnia [Unknown]
  - Gait disturbance [Unknown]
  - Hallucination [Unknown]
  - Confusional state [Unknown]
  - Off label use [Unknown]

NARRATIVE: CASE EVENT DATE: 20220429
